FAERS Safety Report 9248629 (Version 1)
Quarter: 2013Q1

REPORT INFORMATION
  Report Type: Spontaneous
  Country: US (occurrence: None)
  Receive Date: 20130305
  Receipt Date: 20130305
  Transmission Date: 20140127
  Serious: Yes (Other)
  Sender: FDA-Public Use
  Company Number: 163-21880-12092690

PATIENT
  Age: 75 Year
  Sex: Male

DRUGS (1)
  1. REVLIMID [Suspect]
     Indication: PLASMA CELL MYELOMA
     Dosage: 25 MG, 28 IN 28 D, PO
     Route: 048
     Dates: start: 20101021

REACTIONS (7)
  - Exfoliative rash [None]
  - Dry skin [None]
  - Myalgia [None]
  - Muscle spasms [None]
  - Fatigue [None]
  - Paraesthesia oral [None]
  - Local swelling [None]
